APPROVED DRUG PRODUCT: CEFUROXIME SODIUM
Active Ingredient: CEFUROXIME SODIUM
Strength: EQ 750MG BASE/VIAL
Dosage Form/Route: INJECTABLE;INTRAMUSCULAR, INTRAVENOUS
Application: A065001 | Product #001
Applicant: FRESENIUS KABI USA LLC
Approved: May 30, 2001 | RLD: No | RS: No | Type: DISCN